FAERS Safety Report 26174204 (Version 1)
Quarter: 2025Q4

REPORT INFORMATION
  Report Type: Spontaneous
  Country: US (occurrence: None)
  Receive Date: 20251217
  Receipt Date: 20251217
  Transmission Date: 20260117
  Serious: Yes (Hospitalization)
  Sender: FDA-CTU
  Company Number: None

PATIENT
  Age: 64 Year
  Sex: Female

DRUGS (3)
  1. HUMIRA [Suspect]
     Active Substance: ADALIMUMAB
     Dosage: 10/20/30  TAKE AS DIRECTED PER PACKAGE
  2. OTEZLA [Suspect]
     Active Substance: APREMILAST
  3. ENBREL [Suspect]
     Active Substance: ETANERCEPT

REACTIONS (7)
  - Pneumonia [None]
  - Rash [None]
  - Rash papular [None]
  - Fatigue [None]
  - Nausea [None]
  - Pain in extremity [None]
  - Infection [None]
